FAERS Safety Report 21068319 (Version 1)
Quarter: 2022Q3

REPORT INFORMATION
  Report Type: Spontaneous
  Country: CZ (occurrence: CZ)
  Receive Date: 20220712
  Receipt Date: 20220712
  Transmission Date: 20221027
  Serious: Yes (Other)
  Sender: FDA-Public Use
  Company Number: CZ-MYLANLABS-2022M1046899

PATIENT
  Sex: Male

DRUGS (12)
  1. IRINOTECAN [Suspect]
     Active Substance: IRINOTECAN
     Indication: Colorectal cancer metastatic
     Dosage: UNK, REGIMEN FOR 40 CYCLES
     Route: 065
     Dates: start: 201201, end: 201403
  2. IRINOTECAN [Suspect]
     Active Substance: IRINOTECAN
     Dosage: UNK, (THE PATIENT WAS TREATED WITH THE FOLFOX REGIMEN)
     Route: 065
     Dates: start: 201806, end: 201811
  3. OXALIPLATIN [Suspect]
     Active Substance: OXALIPLATIN
     Indication: Colorectal cancer metastatic
     Dosage: UNK, (THE PATIENT WAS TREATED WITH THE FOLFOX REGIMEN)
     Route: 065
     Dates: start: 201806, end: 201811
  4. OXALIPLATIN [Suspect]
     Active Substance: OXALIPLATIN
     Dosage: UNK, (FOLFIRI + BEVACIZUMAB REGIMEN FOR 40 CYCLES)
     Route: 065
     Dates: start: 201201, end: 201403
  5. BEVACIZUMAB [Suspect]
     Active Substance: BEVACIZUMAB
     Indication: Colorectal cancer metastatic
     Dosage: UNK, REGIMEN FOR 40 CYCLES
     Route: 065
     Dates: start: 201201, end: 201403
  6. LEUCOVORIN CALCIUM [Suspect]
     Active Substance: LEUCOVORIN CALCIUM
     Indication: Colorectal cancer metastatic
     Dosage: UNK, (THE PATIENT WAS TREATED WITH THE FOLFOX REGIMEN)
     Route: 065
     Dates: start: 201806, end: 201811
  7. LEUCOVORIN CALCIUM [Suspect]
     Active Substance: LEUCOVORIN CALCIUM
     Dosage: UNK, (FOLFIRI + BEVACIZUMAB REGIMEN FOR 40 CYCLES)
     Route: 065
     Dates: start: 201201, end: 201403
  8. FLUOROURACIL\LEUCOVORIN CALCIUM\OXALIPLATIN [Concomitant]
     Active Substance: FLUOROURACIL\LEUCOVORIN CALCIUM\OXALIPLATIN
     Dosage: UNK
     Route: 065
     Dates: start: 201806, end: 201811
  9. Trifluridine and Tipiracil Hydrochloride [Concomitant]
     Dosage: UNK
     Route: 065
     Dates: start: 202103
  10. FLUOROURACIL [Suspect]
     Active Substance: FLUOROURACIL
  11. IRINOTECAN HYDROCHLORIDE [Suspect]
     Active Substance: IRINOTECAN HYDROCHLORIDE
  12. LEUCOVORIN CALCIUM [Suspect]
     Active Substance: LEUCOVORIN CALCIUM

REACTIONS (5)
  - Neurotoxicity [Unknown]
  - Hepatotoxicity [Unknown]
  - Haematotoxicity [Unknown]
  - Gastrointestinal toxicity [Unknown]
  - Diarrhoea [Unknown]
